FAERS Safety Report 10616540 (Version 1)
Quarter: 2014Q4

REPORT INFORMATION
  Report Type: Other
  Country: IN (occurrence: IN)
  Receive Date: 20141201
  Receipt Date: 20141201
  Transmission Date: 20150529
  Serious: Yes (Death)
  Sender: FDA-Public Use
  Company Number: IN-BRISTOL-MYERS SQUIBB COMPANY-21629985

PATIENT
  Age: 64 Year
  Sex: Male

DRUGS (1)
  1. CARBIDOPA AND LEVODOPA [Suspect]
     Active Substance: CARBIDOPA\LEVODOPA
     Dosage: 1 DF = 100/25 MG HALF TABLET TWICE DAILY.?DOSE HAD BEEN INCREASED TO ONE TABLET TWICE DAILY

REACTIONS (1)
  - Serotonin syndrome [Fatal]
